FAERS Safety Report 5074112-6 (Version None)
Quarter: 2006Q3

REPORT INFORMATION
  Report Type: 
  Country: None (occurrence: None)
  Receive Date: 20060803
  Receipt Date: 20060726
  Transmission Date: 20061208
  Serious: Yes (Hospitalization, Other)
  Sender: FDA-Public Use
  Company Number: 2006BI008719

PATIENT
  Age: 68 Year
  Sex: Female

DRUGS (1)
  1. AVONEX [Suspect]
     Indication: MULTIPLE SCLEROSIS
     Dosage: IM
     Route: 030
     Dates: start: 19970101

REACTIONS (6)
  - CARTILAGE INJURY [None]
  - CEREBROVASCULAR ACCIDENT [None]
  - FIBULA FRACTURE [None]
  - LIGAMENT RUPTURE [None]
  - SOFT TISSUE INJURY [None]
  - TIBIA FRACTURE [None]
